FAERS Safety Report 7477650-1 (Version None)
Quarter: 2011Q2

REPORT INFORMATION
  Report Type: 
  Country: None (occurrence: None)
  Receive Date: 20110513
  Receipt Date: 20110425
  Transmission Date: 20111010
  Serious: Yes (Other)
  Sender: FDA-Public Use
  Company Number: US-BAYER-2010-009290

PATIENT
  Age: 38 Year
  Sex: Female
  Weight: 52.608 kg

DRUGS (18)
  1. YASMIN [Suspect]
     Indication: MENORRHAGIA
  2. YASMIN [Suspect]
     Indication: DYSMENORRHOEA
  3. DICYCLOMINE [Concomitant]
     Dosage: 20 MG, Q4HR
     Route: 048
     Dates: start: 20090107
  4. NAPROXEN SODIUM [Concomitant]
     Dosage: 550 MG, QID
     Dates: start: 20040727
  5. YAZ [Suspect]
     Indication: ACNE
     Dosage: UNK
     Dates: start: 20060701, end: 20080901
  6. YASMIN [Suspect]
     Indication: ACNE
     Dosage: UNK
     Dates: start: 20050801, end: 20060401
  7. PROZAC [Concomitant]
     Indication: PREMENSTRUAL SYNDROME
  8. YAZ [Suspect]
     Indication: MENORRHAGIA
  9. PROZAC [Concomitant]
     Indication: ANXIETY
     Dosage: UNK UNK, QD
     Route: 048
     Dates: start: 19970101
  10. SPIRONOLACTONE [Concomitant]
     Indication: SEBACEOUS HYPERPLASIA
  11. FLUOXETINE [Concomitant]
  12. ZOVIRAX [Concomitant]
  13. AVELOX [Concomitant]
     Indication: SURGERY
     Dosage: UNK
     Route: 048
     Dates: start: 20090109
  14. YAZ [Suspect]
     Indication: PREMENSTRUAL SYNDROME
  15. YAZ [Suspect]
     Indication: DYSMENORRHOEA
  16. SPIRONOLACTONE [Concomitant]
     Indication: ACNE
     Dosage: 50 MG, QD
     Route: 048
     Dates: start: 20081004
  17. VICODIN [Concomitant]
  18. YASMIN [Suspect]
     Indication: PREMENSTRUAL SYNDROME

REACTIONS (5)
  - GALLBLADDER DISORDER [None]
  - BILIARY COLIC [None]
  - CHOLECYSTITIS CHRONIC [None]
  - GALLBLADDER CHOLESTEROLOSIS [None]
  - BILIARY DYSKINESIA [None]
